FAERS Safety Report 7387200-6 (Version None)
Quarter: 2011Q1

REPORT INFORMATION
  Report Type: 
  Country: None (occurrence: None)
  Receive Date: 20110331
  Receipt Date: 20110324
  Transmission Date: 20110831
  Serious: Yes (Hospitalization)
  Sender: FDA-Public Use
  Company Number: B0709550A

PATIENT
  Sex: Female
  Weight: 85 kg

DRUGS (6)
  1. DEXAMETHASONE [Concomitant]
     Route: 048
  2. SALOSPIR [Concomitant]
     Indication: PROPHYLAXIS
     Route: 048
  3. SIMVASTATIN [Concomitant]
     Route: 048
  4. LAPATINIB [Suspect]
     Dosage: 1500MG PER DAY
     Route: 048
     Dates: start: 20110221
  5. LOPRESSOR [Concomitant]
     Indication: HYPERTENSION
     Route: 048
  6. NEXIUM [Concomitant]
     Indication: PROPHYLAXIS
     Route: 048

REACTIONS (2)
  - FATIGUE [None]
  - DYSPNOEA [None]
